APPROVED DRUG PRODUCT: BRIMONIDINE TARTRATE
Active Ingredient: BRIMONIDINE TARTRATE
Strength: 0.2%
Dosage Form/Route: SOLUTION/DROPS;OPHTHALMIC
Application: A076254 | Product #001 | TE Code: AT
Applicant: SANDOZ INC
Approved: Sep 16, 2003 | RLD: No | RS: No | Type: RX